FAERS Safety Report 10026417 (Version 1)
Quarter: 2014Q1

REPORT INFORMATION
  Report Type: Spontaneous
  Country: NL (occurrence: NL)
  Receive Date: 20140321
  Receipt Date: 20140321
  Transmission Date: 20141002
  Serious: Yes (Life-Threatening)
  Sender: FDA-Public Use
  Company Number: NL-ROCHE-1364080

PATIENT
  Age: 38 Year
  Sex: Male
  Weight: 105 kg

DRUGS (16)
  1. PEGASYS [Suspect]
     Indication: HEPATITIS C
     Dosage: 1 TIME PER WEEK 1 PIECE (S)
     Route: 058
     Dates: start: 20131204, end: 20140305
  2. RIBAVIRIN [Suspect]
     Indication: HEPATITIS C
     Dosage: 2 TIMES A DAY 3 PIECE (S), EXTRA INFO: LATER ADAPTED TO 600MG/DAY
     Route: 048
     Dates: start: 20131204, end: 20140305
  3. TELAPREVIR [Suspect]
     Indication: HEPATITIS C
     Dosage: 2 TIMES A DAY 3 PIECE (S), EXTRA INFO: STOPPED ON 27 FEB 2013 ACCORDING TO PROTOCOL
     Route: 048
     Dates: start: 20131204, end: 20140227
  4. METHADON [Concomitant]
     Dosage: STRENGTH : 0.5 MG/ML
     Route: 048
  5. ZYPREXA [Concomitant]
     Dosage: DOSAGE UNKNOWN
     Route: 048
  6. AKINETON [Concomitant]
     Dosage: DOSAGE UNKNOWN
     Route: 048
  7. BUMETANIDE [Concomitant]
     Dosage: DOSAGE UNKNOWN
     Route: 048
  8. ESOMEPRAZOL [Concomitant]
     Dosage: DOSAGE UNKNOWN?FORM - GASTRO-RESISTANT CAPSULE
     Route: 048
  9. THYRAX DUOTAB [Concomitant]
     Dosage: DOSAGE UNKNOWN
     Route: 048
  10. TRANXENE [Concomitant]
     Dosage: DOSAGE UNKNOWN
     Route: 048
  11. DIPIPERON [Concomitant]
     Dosage: DOSAGE UNKNOWN
     Route: 048
  12. TRAMAL [Concomitant]
     Dosage: DOSAGE UNKNOWN
     Route: 048
  13. SYMBICORT TURBUHALER [Concomitant]
     Dosage: DOSAGE UNKNOWN
     Route: 055
  14. VITAMIN B-COMPLEX FORTE [Concomitant]
     Dosage: DOSAGE UNKNOWN
     Route: 048
  15. PARACETAMOL [Concomitant]
     Dosage: DOSAGE UNKNOWN
     Route: 065
  16. DISULFIRAM [Concomitant]
     Dosage: REPORTED AS : REFUSAL?DOSAGE UNKNOWN
     Route: 065

REACTIONS (1)
  - Deep vein thrombosis [Unknown]
